FAERS Safety Report 25831967 (Version 1)
Quarter: 2025Q3

REPORT INFORMATION
  Report Type: Report from Study
  Country: CA (occurrence: CA)
  Receive Date: 20250922
  Receipt Date: 20250922
  Transmission Date: 20251021
  Serious: Yes (Other)
  Sender: TAKEDA
  Company Number: CA-TAKEDA-2019TUS065190

PATIENT
  Sex: Female

DRUGS (12)
  1. VEDOLIZUMAB [Suspect]
     Active Substance: VEDOLIZUMAB
     Indication: Colitis ulcerative
  2. VEDOLIZUMAB [Suspect]
     Active Substance: VEDOLIZUMAB
  3. VEDOLIZUMAB [Suspect]
     Active Substance: VEDOLIZUMAB
  4. VEDOLIZUMAB [Suspect]
     Active Substance: VEDOLIZUMAB
  5. Cortiment [Concomitant]
  6. ASPIRIN [Concomitant]
     Active Substance: ASPIRIN
  7. DILTIAZEM [Concomitant]
     Active Substance: DILTIAZEM
  8. LINAGLIPTIN [Concomitant]
     Active Substance: LINAGLIPTIN
  9. ROSUVASTATIN [Concomitant]
     Active Substance: ROSUVASTATIN
  10. FUROSEMIDE [Concomitant]
     Active Substance: FUROSEMIDE
  11. PERINDOPRIL [Concomitant]
     Active Substance: PERINDOPRIL
  12. METFORMIN [Concomitant]
     Active Substance: METFORMIN HYDROCHLORIDE

REACTIONS (1)
  - Colitis ulcerative [Unknown]
